FAERS Safety Report 4521289-4 (Version None)
Quarter: 2004Q4

REPORT INFORMATION
  Report Type: 
  Country: None (occurrence: None)
  Receive Date: 20041208
  Receipt Date: 20041129
  Transmission Date: 20050328
  Serious: Yes (Hospitalization)
  Sender: FDA-Public Use
  Company Number: SE-GLAXOSMITHKLINE-B0359154A

PATIENT
  Age: 73 Year
  Sex: Male

DRUGS (16)
  1. VALTREX [Suspect]
     Indication: HERPES ZOSTER
     Dosage: 1G PER DAY
     Route: 048
     Dates: start: 20041014, end: 20041020
  2. MORFIN [Suspect]
     Indication: PAIN
     Dosage: 5MG AS REQUIRED
     Route: 048
     Dates: start: 20040914, end: 20041016
  3. ACETAMINOPHEN [Concomitant]
     Route: 065
  4. GLYTRIN [Concomitant]
     Route: 065
  5. INSULATARD NPH HUMAN [Concomitant]
     Route: 065
  6. OMEPRAZOLE [Concomitant]
     Route: 065
  7. FOLACIN [Concomitant]
     Route: 065
  8. KETOGAN [Concomitant]
     Route: 065
  9. POLARAMIN [Concomitant]
     Route: 065
  10. LAXOBERAL [Concomitant]
     Route: 065
  11. BICART [Concomitant]
     Route: 065
  12. ASPIRIN [Concomitant]
     Route: 065
  13. EMLA [Concomitant]
     Route: 065
  14. CALCITUGG [Concomitant]
     Route: 065
  15. XERODENT [Concomitant]
     Route: 065
  16. ZOPIKLON [Concomitant]
     Route: 065

REACTIONS (3)
  - CONFUSIONAL STATE [None]
  - DYSPNOEA [None]
  - PAIN [None]
